FAERS Safety Report 9286201 (Version 1)
Quarter: 2013Q2

REPORT INFORMATION
  Report Type: Spontaneous
  Country: US (occurrence: US)
  Receive Date: 20130513
  Receipt Date: 20130513
  Transmission Date: 20140414
  Serious: No
  Sender: FDA-Public Use
  Company Number: US-ASTRAZENECA-2013SE31329

PATIENT
  Age: 15 Year
  Sex: Female
  Weight: 47.6 kg

DRUGS (9)
  1. SEROQUEL [Suspect]
     Indication: DEPRESSION
     Route: 048
     Dates: start: 201304
  2. SEROQUEL [Suspect]
     Indication: DEPRESSION
     Route: 048
  3. SEROQUEL [Suspect]
     Indication: DEPRESSION
     Route: 048
  4. SEROQUEL [Suspect]
     Indication: DEPRESSION
     Route: 048
  5. SEROQUEL [Suspect]
     Indication: DEPRESSION
     Route: 048
     Dates: start: 20130501
  6. SEROQUEL [Suspect]
     Indication: DEPRESSION
     Route: 048
  7. VITAMIN D [Concomitant]
  8. MULTIVITAMIN [Concomitant]
  9. PROZAC [Concomitant]
     Indication: DEPRESSION

REACTIONS (7)
  - Myalgia [Not Recovered/Not Resolved]
  - Thirst [Unknown]
  - Hallucination, auditory [Unknown]
  - Vitamin D deficiency [Unknown]
  - Ligament disorder [Unknown]
  - Decreased appetite [Unknown]
  - Muscle spasms [Unknown]
